FAERS Safety Report 13301211 (Version 1)
Quarter: 2017Q1

REPORT INFORMATION
  Report Type: Spontaneous
  Country: US (occurrence: US)
  Receive Date: 20170306
  Receipt Date: 20170306
  Transmission Date: 20170428
  Serious: Yes (Other)
  Sender: FDA-Public Use
  Company Number: None

PATIENT
  Age: 31 Year
  Sex: Female
  Weight: 81 kg

DRUGS (1)
  1. AMOXICILLIN AND CLAVULANATE POTASSIUM [Suspect]
     Active Substance: AMOXICILLIN\CLAVULANATE POTASSIUM
     Indication: SIALOADENITIS
     Route: 048
     Dates: start: 20170222, end: 20170226

REACTIONS (2)
  - Drug eruption [None]
  - Erythema multiforme [None]

NARRATIVE: CASE EVENT DATE: 20170223
